FAERS Safety Report 7796731-6 (Version None)
Quarter: 2011Q4

REPORT INFORMATION
  Report Type: 
  Country: None (occurrence: None)
  Receive Date: 20111003
  Receipt Date: 20110927
  Transmission Date: 20120403
  Serious: Yes (Life-Threatening, Hospitalization, Congenital Anomaly)
  Sender: FDA-Public Use
  Company Number: TIR-00654

PATIENT
  Sex: Female

DRUGS (1)
  1. LEVOTHYROXINE SODIUM [Suspect]
     Dosage: TRANSPLACENTAL
     Route: 064

REACTIONS (19)
  - PREMATURE BABY [None]
  - BLOOD BILIRUBIN INCREASED [None]
  - BLOOD CREATININE INCREASED [None]
  - RESPIRATORY DISORDER NEONATAL [None]
  - BLOOD SODIUM DECREASED [None]
  - BLOOD POTASSIUM INCREASED [None]
  - GENE MUTATION [None]
  - POLYHYDRAMNIOS [None]
  - USE OF ACCESSORY RESPIRATORY MUSCLES [None]
  - NEONATAL TACHYCARDIA [None]
  - CARDIAC MURMUR [None]
  - SMALL INTESTINAL OBSTRUCTION [None]
  - NEONATAL INTESTINAL DILATATION [None]
  - MATERNAL DRUGS AFFECTING FOETUS [None]
  - BLOOD BICARBONATE DECREASED [None]
  - NEONATAL TACHYPNOEA [None]
  - DIARRHOEA NEONATAL [None]
  - BLOOD CHLORIDE DECREASED [None]
  - FAECES DISCOLOURED [None]
